FAERS Safety Report 10271855 (Version 2)
Quarter: 2014Q3

REPORT INFORMATION
  Report Type: Spontaneous
  Country: FR (occurrence: FR)
  Receive Date: 20140702
  Receipt Date: 20140710
  Transmission Date: 20150326
  Serious: Yes (Other)
  Sender: FDA-Public Use
  Company Number: ALCN2014FR003694

PATIENT
  Age: 37 Year
  Sex: Male

DRUGS (1)
  1. TRAVATAN [Suspect]
     Active Substance: TRAVOPROST
     Dosage: 1 DF, ONCE/SINGLE
     Route: 047

REACTIONS (4)
  - Conjunctivitis [Recovered/Resolved]
  - Wrong drug administered [Recovered/Resolved]
  - Ocular hyperaemia [Recovered/Resolved]
  - Ocular discomfort [Recovered/Resolved]

NARRATIVE: CASE EVENT DATE: 20140504
